FAERS Safety Report 7684431 (Version 5)
Quarter: 2019Q2

REPORT INFORMATION
  Report Type: Spontaneous
  Country: KR (occurrence: KR)
  Receive Date: 20101129
  Receipt Date: 20190516
  Transmission Date: 20190711
  Serious: Yes (Death, Hospitalization, Other)
  Sender: FDA-Public Use
  Company Number: KP-ALEXION-A201001483

PATIENT
  Age: 24 Year
  Sex: Female

DRUGS (5)
  1. SOLIRIS [Suspect]
     Active Substance: ECULIZUMAB
     Indication: PAROXYSMAL NOCTURNAL HAEMOGLOBINURIA
     Dosage: 600 MG, QW
     Route: 042
     Dates: start: 20091223, end: 20100119
  2. SILYMARIN [Concomitant]
     Active Substance: DIETARY SUPPLEMENT\HERBALS\MILK THISTLE
     Indication: PRODUCT USED FOR UNKNOWN INDICATION
     Dosage: 2C-3C
     Route: 048
     Dates: start: 20070516, end: 20101116
  3. FEXOFENADINE [Concomitant]
     Active Substance: FEXOFENADINE\FEXOFENADINE HYDROCHLORIDE
     Indication: PRODUCT USED FOR UNKNOWN INDICATION
     Dosage: 120 MG, UNK
     Route: 048
     Dates: start: 20100917, end: 20101116
  4. SOLIRIS [Suspect]
     Active Substance: ECULIZUMAB
     Dosage: 900 MG, Q2W
     Route: 042
     Dates: start: 20100120, end: 20101112
  5. FOLIC ACID. [Concomitant]
     Active Substance: FOLIC ACID
     Indication: PRODUCT USED FOR UNKNOWN INDICATION
     Dosage: 2-4 MG
     Route: 048
     Dates: start: 20060119, end: 20101116

REACTIONS (14)
  - Extremity necrosis [Unknown]
  - Sepsis [Fatal]
  - Paroxysmal nocturnal haemoglobinuria [Fatal]
  - Metabolic acidosis [Unknown]
  - Cerebral haemorrhage [Unknown]
  - Stress cardiomyopathy [Unknown]
  - Condition aggravated [Unknown]
  - Meningococcal bacteraemia [Fatal]
  - Pulmonary haemorrhage [Unknown]
  - Renal failure [Unknown]
  - Disseminated intravascular coagulation [Unknown]
  - Haemolysis [Unknown]
  - Coma [Unknown]
  - Septic shock [Unknown]

NARRATIVE: CASE EVENT DATE: 201011
